FAERS Safety Report 9708361 (Version 2)
Quarter: 2014Q2

REPORT INFORMATION
  Report Type: Spontaneous
  Country: US (occurrence: US)
  Receive Date: 20131125
  Receipt Date: 20140512
  Transmission Date: 20141212
  Serious: No
  Sender: FDA-Public Use
  Company Number: US-009507513-1311USA007919

PATIENT
  Sex: Male
  Weight: 79.37 kg

DRUGS (5)
  1. CLARITIN [Suspect]
     Indication: HYPERSENSITIVITY
     Dosage: UNK, UNKNOWN
     Route: 048
  2. TRAZODONE HYDROCHLORIDE [Concomitant]
     Indication: AUTISM
     Dosage: 75 MG, QD
  3. RISPERIDONE [Concomitant]
     Indication: PRODUCT USED FOR UNKNOWN INDICATION
     Dosage: 1 MG, BID
  4. FEXOFENADINE HYDROCHLORIDE [Concomitant]
     Indication: HYPERSENSITIVITY
     Dosage: UNK, PRN
  5. MELATONIN [Concomitant]
     Indication: SLEEP DISORDER
     Dosage: 10 MG, QD

REACTIONS (1)
  - Drug ineffective [Unknown]
